FAERS Safety Report 18566998 (Version 1)
Quarter: 2020Q4

REPORT INFORMATION
  Report Type: Spontaneous
  Country: GB (occurrence: GB)
  Receive Date: 20201201
  Receipt Date: 20201201
  Transmission Date: 20210114
  Serious: Yes (Other)
  Sender: FDA-Public Use
  Company Number: GB-ASCEND THERAPEUTICS US, LLC-2096516

PATIENT
  Sex: Female

DRUGS (3)
  1. ESTROGEL [Suspect]
     Active Substance: ESTRADIOL
     Indication: PRODUCT USED FOR UNKNOWN INDICATION
     Route: 065
  2. ESTROGEL [Suspect]
     Active Substance: ESTRADIOL
  3. OESTRODOSE (ESTRADIOL) (GEL), UNKNOWN [Suspect]
     Active Substance: ESTRADIOL
     Route: 065

REACTIONS (3)
  - Drug ineffective [None]
  - Stress [Unknown]
  - Suicidal ideation [Unknown]
